FAERS Safety Report 4394408-0 (Version None)
Quarter: 2004Q3

REPORT INFORMATION
  Report Type: 
  Country: None (occurrence: None)
  Receive Date: 20040712
  Receipt Date: 20040225
  Transmission Date: 20050211
  Serious: Yes (Other)
  Sender: FDA-Public Use
  Company Number: 200410633JP

PATIENT
  Age: 70 Year
  Sex: Female
  Weight: 50 kg

DRUGS (4)
  1. KETEK [Suspect]
     Indication: BRONCHITIS
     Route: 048
     Dates: start: 20040213, end: 20040214
  2. CODEINE PHOSPHATE [Concomitant]
     Indication: BRONCHITIS
     Dosage: DOSE: UNK
     Route: 048
     Dates: start: 20040213
  3. MUCODYNE [Concomitant]
     Indication: BRONCHITIS
     Dosage: DOSE: UNK
     Route: 048
     Dates: start: 20040213
  4. ANTI-HISTAMINE TAB [Concomitant]
     Indication: BRONCHITIS
     Dosage: DOSE: 2/3 TABLET
     Route: 048
     Dates: start: 20040213

REACTIONS (8)
  - BACTERIA SPUTUM IDENTIFIED [None]
  - DIZZINESS [None]
  - FALL [None]
  - FEELING ABNORMAL [None]
  - LOSS OF CONSCIOUSNESS [None]
  - PYREXIA [None]
  - STAPHYLOCOCCAL INFECTION [None]
  - STOMACH DISCOMFORT [None]
